FAERS Safety Report 21727840 (Version 2)
Quarter: 2025Q1

REPORT INFORMATION
  Report Type: Spontaneous
  Country: TH (occurrence: TH)
  Receive Date: 20221214
  Receipt Date: 20250131
  Transmission Date: 20250409
  Serious: Yes (Death, Other)
  Sender: ASTELLAS
  Company Number: TH-ASTELLAS-2022US043896

PATIENT
  Age: 37 Year
  Sex: Female

DRUGS (1)
  1. PROGRAF [Suspect]
     Active Substance: TACROLIMUS
     Indication: Product used for unknown indication
     Route: 065
     Dates: start: 20220506, end: 20220509

REACTIONS (2)
  - Microangiopathic haemolytic anaemia [Fatal]
  - Haemolytic anaemia [Fatal]

NARRATIVE: CASE EVENT DATE: 20220507
